FAERS Safety Report 7203548-X (Version None)
Quarter: 2010Q4

REPORT INFORMATION
  Report Type: 
  Country: None (occurrence: None)
  Receive Date: 20101230
  Receipt Date: 20101221
  Transmission Date: 20110411
  Serious: Yes (Hospitalization)
  Sender: FDA-Public Use
  Company Number: KR-ASTELLAS-2010JP007612

PATIENT
  Age: 33 Year
  Sex: Male

DRUGS (6)
  1. TACROLIMUS [Suspect]
     Indication: IMMUNOSUPPRESSION
     Route: 065
  2. CIPROFLOXACIN [Suspect]
     Indication: PLEURAL EFFUSION
     Route: 065
  3. RIFAMPICIN [Concomitant]
     Indication: PLEURAL EFFUSION
     Route: 065
  4. ISONIAZID [Concomitant]
     Indication: PLEURAL EFFUSION
     Route: 065
  5. ETHAMBUTOL HYDROCHLORIDE [Concomitant]
     Indication: PLEURAL EFFUSION
     Route: 065
  6. PYRAZINAMIDE [Concomitant]
     Indication: PLEURAL EFFUSION
     Route: 065

REACTIONS (1)
  - PERICARDITIS CONSTRICTIVE [None]
